FAERS Safety Report 6625915-5 (Version None)
Quarter: 2010Q1

REPORT INFORMATION
  Report Type: 
  Country: None (occurrence: None)
  Receive Date: 20100310
  Receipt Date: 20100302
  Transmission Date: 20100710
  Serious: Yes (Other)
  Sender: FDA-Public Use
  Company Number: US-JNJCH-2009031677

PATIENT
  Age: 16 Year

DRUGS (1)
  1. ASPIRIN [Suspect]
     Indication: DRUG USE FOR UNKNOWN INDICATION
     Dosage: TEXT:81,000 MG - UNSPECIFIED
     Route: 048

REACTIONS (1)
  - THERAPEUTIC AGENT TOXICITY [None]
